FAERS Safety Report 7532307-3 (Version None)
Quarter: 2011Q2

REPORT INFORMATION
  Report Type: 
  Country: None (occurrence: None)
  Receive Date: 20110608
  Receipt Date: 20110531
  Transmission Date: 20111010
  Serious: Yes (Hospitalization)
  Sender: FDA-Public Use
  Company Number: JP-BRISTOL-MYERS SQUIBB COMPANY-15727522

PATIENT
  Age: 39 Year
  Sex: Female

DRUGS (6)
  1. PENTOBARBITAL CALCIUM [Concomitant]
     Dosage: TABLET
     Dates: start: 20110426, end: 20110426
  2. SILECE [Concomitant]
     Dosage: TABLET
     Dates: start: 20110426, end: 20110426
  3. AKINETON [Concomitant]
     Dosage: TABLET
     Dates: start: 20110426, end: 20110426
  4. MAGNESIUM OXIDE [Concomitant]
     Dosage: TABLET
     Dates: start: 20110426, end: 20110426
  5. ABILIFY [Suspect]
     Route: 048
     Dates: start: 20110426, end: 20110426
  6. DEPAKENE [Concomitant]
     Dosage: TABLET
     Dates: start: 20110426, end: 20110426

REACTIONS (4)
  - GLOSSOPTOSIS [None]
  - MULTIPLE DRUG OVERDOSE [None]
  - SUICIDE ATTEMPT [None]
  - DEPRESSED LEVEL OF CONSCIOUSNESS [None]
